FAERS Safety Report 5962380-5 (Version None)
Quarter: 2008Q4

REPORT INFORMATION
  Report Type: 
  Country: None (occurrence: None)
  Receive Date: 20081121
  Receipt Date: 20081114
  Transmission Date: 20090506
  Serious: Yes (Hospitalization)
  Sender: FDA-Public Use
  Company Number: US-AMGEN-QUU319065

PATIENT
  Sex: Male

DRUGS (3)
  1. ENBREL [Suspect]
     Indication: RHEUMATOID ARTHRITIS
     Route: 058
     Dates: start: 20080601
  2. SULFASALAZINE [Concomitant]
     Route: 048
  3. METHOTREXATE [Concomitant]
     Route: 048

REACTIONS (3)
  - CARDIAC VALVE DISEASE [None]
  - HEART RATE INCREASED [None]
  - RHEUMATOID ARTHRITIS [None]
